FAERS Safety Report 7777252-3 (Version None)
Quarter: 2011Q3

REPORT INFORMATION
  Report Type: 
  Country: None (occurrence: None)
  Receive Date: 20110926
  Receipt Date: 20110911
  Transmission Date: 20111222
  Serious: No
  Sender: FDA-Public Use
  Company Number: PHHY2011MX81396

PATIENT
  Age: 43 Year
  Sex: Male

DRUGS (1)
  1. DIOVAN HCT [Suspect]
     Indication: HYPERTENSION
     Dosage: 1 DF, (80/12.5 MG ONE PER DAY)
     Dates: start: 20070901

REACTIONS (1)
  - BLOOD PRESSURE INCREASED [None]
